FAERS Safety Report 9394194 (Version 6)
Quarter: 2013Q4

REPORT INFORMATION
  Report Type: Report from Study
  Country: US (occurrence: US)
  Receive Date: 20130711
  Receipt Date: 20131119
  Transmission Date: 20140711
  Serious: Yes (Other)
  Sender: FDA-Public Use
  Company Number: US-ROCHE-1247501

PATIENT
  Sex: Male

DRUGS (3)
  1. LUCENTIS [Suspect]
     Indication: DIABETIC RETINAL OEDEMA
     Dosage: RIGHT EYE
     Route: 050
     Dates: start: 20130628
  2. LUCENTIS [Suspect]
     Indication: DIABETIC RETINOPATHY
     Route: 050
     Dates: start: 20130719, end: 20131108
  3. LUCENTIS [Suspect]
     Indication: DIABETIC RETINOPATHY
     Route: 050
     Dates: start: 20130714

REACTIONS (7)
  - Cerebrovascular accident [Unknown]
  - Foreign body sensation in eyes [Unknown]
  - Inflammation [Unknown]
  - Visual acuity reduced [Unknown]
  - Eye irritation [Unknown]
  - General physical health deterioration [Unknown]
  - Vision blurred [Unknown]
